FAERS Safety Report 17719119 (Version 2)
Quarter: 2020Q2

REPORT INFORMATION
  Report Type: Spontaneous
  Country: US (occurrence: US)
  Receive Date: 20200428
  Receipt Date: 20200507
  Transmission Date: 20200714
  Serious: No
  Sender: FDA-Public Use
  Company Number: US-PFIZER INC-2020164752

PATIENT
  Age: 64 Year
  Sex: Female
  Weight: 95.25 kg

DRUGS (3)
  1. CELEBREX [Suspect]
     Active Substance: CELECOXIB
     Indication: OSTEOARTHRITIS
     Dosage: 200 MG (DOSE CHANGED FROM 200MG TO 100MG AT REQUEST OF CALLER)
     Dates: start: 2019
  2. CELEBREX [Suspect]
     Active Substance: CELECOXIB
     Dosage: 100 MG, 2X/DAY
  3. GABAPENTIN. [Concomitant]
     Active Substance: GABAPENTIN
     Indication: NEUROPATHY PERIPHERAL
     Dosage: 1200 MG, DAILY,300MG, TWICE DAILY AND 600 AT BEDTIME
     Dates: start: 2012

REACTIONS (1)
  - Intentional product misuse [Unknown]
